FAERS Safety Report 18603358 (Version 1)
Quarter: 2020Q4

REPORT INFORMATION
  Report Type: Spontaneous
  Country: FR (occurrence: FR)
  Receive Date: 20201210
  Receipt Date: 20201210
  Transmission Date: 20210114
  Serious: Yes (Hospitalization, Other)
  Sender: FDA-Public Use
  Company Number: FR-JNJFOC-20201212214

PATIENT
  Sex: Male

DRUGS (4)
  1. SPRAVATO [Suspect]
     Active Substance: ESKETAMINE
     Dosage: THIRD SESSION
     Dates: start: 20201204, end: 20201204
  2. LITHIUM. [Concomitant]
     Active Substance: LITHIUM
  3. ABILIFY [Concomitant]
     Active Substance: ARIPIPRAZOLE
  4. SPRAVATO [Suspect]
     Active Substance: ESKETAMINE
     Indication: DEPRESSION

REACTIONS (2)
  - Hospitalisation [Unknown]
  - Hypertension [Recovering/Resolving]

NARRATIVE: CASE EVENT DATE: 20201120
